FAERS Safety Report 7355192-1 (Version None)
Quarter: 2011Q1

REPORT INFORMATION
  Report Type: 
  Country: None (occurrence: None)
  Receive Date: 20110316
  Receipt Date: 20110308
  Transmission Date: 20110831
  Serious: Yes (Other)
  Sender: FDA-Public Use
  Company Number: US-PFIZER INC-2011023435

PATIENT
  Sex: Female
  Weight: 72.562 kg

DRUGS (8)
  1. KLONOPIN [Concomitant]
     Dosage: UNK
  2. GEODON [Suspect]
     Indication: BIPOLAR DISORDER
     Dosage: 60 MG, HS
     Route: 048
     Dates: start: 20101207, end: 20110131
  3. PROTONIX [Concomitant]
     Dosage: 40 MG, UNK
  4. VENLAFAXINE [Concomitant]
     Dosage: 150 MG, DAILY
  5. EFFEXOR XR [Suspect]
     Indication: DEPRESSION
     Dosage: 300 MG, UNK
     Route: 048
     Dates: start: 20101207
  6. ATENOLOL [Concomitant]
     Dosage: 50 MG, UNK
  7. RAMIPRIL [Concomitant]
     Dosage: 10 MG, 2X/DAY
  8. LISINOPRIL [Concomitant]
     Dosage: UNK

REACTIONS (1)
  - ARRHYTHMIA [None]
